FAERS Safety Report 8819761 (Version 1)
Quarter: 2012Q4

REPORT INFORMATION
  Report Type: 
  Country: US (occurrence: US)
  Receive Date: 20121001
  Receipt Date: 20121001
  Transmission Date: 20130627
  Serious: Yes (Hospitalization)
  Sender: FDA-Public Use
  Company Number: US-ROCHE-1129619

PATIENT
  Sex: Female

DRUGS (1)
  1. HERCEPTIN [Suspect]
     Indication: BLADDER CANCER
     Route: 065
     Dates: start: 20030929

REACTIONS (2)
  - Intestinal obstruction [Unknown]
  - Pain [Unknown]
